FAERS Safety Report 4285080-9 (Version None)
Quarter: 2004Q1

REPORT INFORMATION
  Report Type: 
  Country: None (occurrence: None)
  Receive Date: 20040202
  Receipt Date: 20031212
  Transmission Date: 20041129
  Serious: Yes (Other)
  Sender: FDA-Public Use
  Company Number: 2003UW16496

PATIENT
  Age: 48 Year
  Sex: Female
  Weight: 57 kg

DRUGS (6)
  1. ARIMIDEX [Suspect]
     Indication: BREAST CANCER
     Dosage: 1 MG QD PO
     Route: 048
     Dates: start: 20030924, end: 20031008
  2. FOSAMAX [Concomitant]
  3. ATIVAN [Concomitant]
  4. VIOXX [Concomitant]
  5. CALCIUM W/MAGNESIUM [Concomitant]
  6. HERCEPTIN [Concomitant]

REACTIONS (5)
  - DYSPHAGIA [None]
  - DYSPNOEA [None]
  - OROPHARYNGEAL SWELLING [None]
  - PHARYNGITIS STREPTOCOCCAL [None]
  - THROAT TIGHTNESS [None]
